FAERS Safety Report 6840851-7 (Version None)
Quarter: 2010Q3

REPORT INFORMATION
  Report Type: 
  Country: None (occurrence: None)
  Receive Date: 20100714
  Receipt Date: 20070617
  Transmission Date: 20110219
  Serious: No
  Sender: FDA-Public Use
  Company Number: US-PFIZER INC-2007051759

PATIENT
  Sex: Male
  Weight: 70.3 kg

DRUGS (17)
  1. CHANTIX [Suspect]
     Indication: SMOKING CESSATION THERAPY
     Dates: start: 20070607
  2. PLAVIX [Concomitant]
  3. VITAMIN D [Concomitant]
  4. GLUCOPHAGE [Concomitant]
  5. TENORMIN [Concomitant]
  6. REGLAN [Concomitant]
  7. PROTONIX [Concomitant]
  8. XANAX [Concomitant]
  9. CRESTOR [Concomitant]
  10. SERZONE [Concomitant]
  11. ACTOS [Concomitant]
  12. ACTOS [Concomitant]
  13. MOBIC [Concomitant]
  14. MULTI-VITAMINS [Concomitant]
  15. ACETYLSALICYLIC ACID [Concomitant]
  16. CALCIUM [Concomitant]
  17. ALL OTHER THERAPEUTIC PRODUCTS [Concomitant]

REACTIONS (2)
  - NAUSEA [None]
  - WEIGHT DECREASED [None]
